FAERS Safety Report 7548106-2 (Version None)
Quarter: 2011Q2

REPORT INFORMATION
  Report Type: 
  Country: None (occurrence: None)
  Receive Date: 20110615
  Receipt Date: 20110126
  Transmission Date: 20111010
  Serious: Yes (Hospitalization, Other)
  Sender: FDA-Public Use
  Company Number: US-BAYER-201031743NA

PATIENT
  Age: 18 Year
  Sex: Female
  Weight: 56.689 kg

DRUGS (6)
  1. YAZ [Suspect]
     Indication: PRODUCT USED FOR UNKNOWN INDICATION
     Dosage: UNK
     Route: 048
     Dates: start: 20020501
  2. YASMIN [Suspect]
     Indication: PRODUCT USED FOR UNKNOWN INDICATION
     Dosage: UNK
     Route: 048
     Dates: start: 20020501, end: 20041210
  3. ALLERGY MEDICATION [Concomitant]
     Indication: HYPERSENSITIVITY
  4. TRAZODONE HCL [Concomitant]
  5. LEXAPRO [Concomitant]
  6. SEASONALE [Concomitant]
     Dosage: UNK
     Dates: start: 20040420, end: 20040722

REACTIONS (10)
  - ABDOMINAL PAIN [None]
  - ABDOMINAL PAIN UPPER [None]
  - CHOLELITHIASIS [None]
  - CHOLECYSTITIS CHRONIC [None]
  - GASTROOESOPHAGEAL REFLUX DISEASE [None]
  - PAIN [None]
  - WEIGHT DECREASED [None]
  - OESOPHAGEAL SPASM [None]
  - GALLBLADDER DISORDER [None]
  - COSTOCHONDRITIS [None]
